FAERS Safety Report 4541813-5 (Version None)
Quarter: 2004Q4

REPORT INFORMATION
  Report Type: 
  Country: None (occurrence: None)
  Receive Date: 20041230
  Receipt Date: 20041222
  Transmission Date: 20050328
  Serious: Yes (Other)
  Sender: FDA-Public Use
  Company Number: PHBS2004JP17355

PATIENT
  Age: 72 Year
  Sex: Male

DRUGS (3)
  1. LAMISIL [Suspect]
     Indication: NAIL TINEA
     Dosage: 125 MG/D
     Route: 048
  2. NORVASC [Concomitant]
     Dosage: 5 MG/D
     Route: 048
  3. MYCOSPOR [Concomitant]
     Route: 061

REACTIONS (2)
  - PERIPHERAL CIRCULATORY FAILURE [None]
  - PERIPHERAL VASCULAR DISORDER [None]
